FAERS Safety Report 22288400 (Version 1)
Quarter: 2023Q2

REPORT INFORMATION
  Report Type: Spontaneous
  Country: US (occurrence: US)
  Receive Date: 20230505
  Receipt Date: 20230505
  Transmission Date: 20230721
  Serious: Yes (Hospitalization, Other)
  Sender: FDA-Public Use
  Company Number: US-SA-SAC20230505000278

PATIENT
  Age: 4 Year
  Sex: Female

DRUGS (1)
  1. DUPIXENT [Suspect]
     Active Substance: DUPILUMAB
     Dosage: 200 MG, Q4W
     Route: 058
     Dates: start: 202303

REACTIONS (3)
  - Rhinovirus infection [Unknown]
  - Enterovirus infection [Unknown]
  - Respiratory syncytial virus infection [Unknown]

NARRATIVE: CASE EVENT DATE: 20230301
